FAERS Safety Report 4703352-8 (Version None)
Quarter: 2005Q2

REPORT INFORMATION
  Report Type: 
  Country: None (occurrence: None)
  Receive Date: 20050624
  Receipt Date: 20050328
  Transmission Date: 20051028
  Serious: No
  Sender: FDA-Public Use
  Company Number: 2005BI001956

PATIENT
  Age: 28 Year
  Sex: Male
  Weight: 68.4932 kg

DRUGS (1)
  1. NATALIZUMAB [Suspect]
     Indication: MULTIPLE SCLEROSIS
     Dosage: 300 MG;QM; IV
     Route: 042
     Dates: start: 20050118

REACTIONS (7)
  - ALCOHOL PROBLEM [None]
  - ANXIETY [None]
  - DEPRESSION [None]
  - ERYTHEMA [None]
  - NICOTINE DEPENDENCE [None]
  - PRURITUS [None]
  - SUICIDAL IDEATION [None]
